FAERS Safety Report 6136034-9 (Version None)
Quarter: 2009Q1

REPORT INFORMATION
  Report Type: 
  Country: None (occurrence: None)
  Receive Date: 20090330
  Receipt Date: 20090323
  Transmission Date: 20090719
  Serious: Yes (Life-Threatening, Hospitalization)
  Sender: FDA-Public Use
  Company Number: AU-JNJFOC-20090300102

PATIENT
  Sex: Female
  Weight: 98 kg

DRUGS (13)
  1. DURAGESIC-100 [Suspect]
     Indication: ARTHRALGIA
     Route: 062
  2. NORSPAN [Suspect]
     Indication: PAIN
     Route: 065
  3. OXYCONTIN [Suspect]
     Dosage: 20 UNITS UNSPECIFIED
     Route: 065
  4. OXYCONTIN [Suspect]
     Indication: PAIN
     Dosage: 20 UNITS UNSPECIFIED
     Route: 065
  5. SEROQUEL [Concomitant]
     Dosage: 25MG TO 50MG
     Route: 065
  6. PANAMAX [Concomitant]
     Dosage: 2 FOUR TIMES
     Route: 065
  7. DIABEX [Concomitant]
     Route: 065
  8. THYROXINE [Concomitant]
     Dosage: 50 MG DAILY
     Route: 065
  9. AVAPRO [Concomitant]
     Route: 065
  10. DIAMICRON [Concomitant]
     Route: 065
  11. IPRATRIN [Concomitant]
     Route: 065
  12. PULMICORT-100 [Concomitant]
     Route: 065
  13. ASCAL [Concomitant]

REACTIONS (5)
  - HEADACHE [None]
  - NAUSEA [None]
  - ORGAN FAILURE [None]
  - PNEUMONIA [None]
  - RENAL FAILURE [None]
